FAERS Safety Report 6692555-1 (Version None)
Quarter: 2010Q2

REPORT INFORMATION
  Report Type: 
  Country: None (occurrence: None)
  Receive Date: 20100419
  Receipt Date: 20100405
  Transmission Date: 20101027
  Serious: Yes (Other)
  Sender: FDA-Public Use
  Company Number: 2010SP020000

PATIENT
  Sex: Female
  Weight: 62 kg

DRUGS (1)
  1. IMPLANON [Suspect]
     Indication: CONTRACEPTION
     Dosage: SBDE
     Dates: start: 20050714

REACTIONS (13)
  - AMENORRHOEA [None]
  - ANAEMIA [None]
  - CAESAREAN SECTION [None]
  - DRUG EXPOSURE DURING PREGNANCY [None]
  - IMPLANT SITE REACTION [None]
  - INCORRECT DRUG ADMINISTRATION DURATION [None]
  - METRORRHAGIA [None]
  - OVARIAN CYST [None]
  - PREGNANCY WITH IMPLANT CONTRACEPTIVE [None]
  - SCAR [None]
  - SYNCOPE [None]
  - VAGINAL HAEMORRHAGE [None]
  - WEIGHT INCREASED [None]
